FAERS Safety Report 6106848-X (Version None)
Quarter: 2009Q1

REPORT INFORMATION
  Report Type: 
  Country: None (occurrence: None)
  Receive Date: 20090304
  Receipt Date: 20090212
  Transmission Date: 20090719
  Serious: Yes (Other)
  Sender: FDA-Public Use
  Company Number: JPI-P-006151

PATIENT
  Age: 20 Year
  Sex: Female

DRUGS (1)
  1. LUVOX CR [Suspect]
     Indication: OBSESSIVE-COMPULSIVE DISORDER
     Dosage: (50 MG,1 D); (100 MG, 1D)

REACTIONS (1)
  - LEUKOCYTOCLASTIC VASCULITIS [None]
